FAERS Safety Report 26215018 (Version 1)
Quarter: 2025Q4

REPORT INFORMATION
  Report Type: Report from Study
  Country: US (occurrence: US)
  Receive Date: 20251230
  Receipt Date: 20251230
  Transmission Date: 20260117
  Serious: Yes (Hospitalization)
  Sender: ABBVIE
  Company Number: US-ABBVIE-6609265

PATIENT
  Age: 81 Year
  Sex: Female

DRUGS (1)
  1. LUMIGAN [Suspect]
     Active Substance: BIMATOPROST
     Indication: Product used for unknown indication
     Route: 047
     Dates: end: 2025

REACTIONS (4)
  - Influenza [Unknown]
  - COVID-19 [Unknown]
  - Pneumothorax [Unknown]
  - Pneumonia [Unknown]

NARRATIVE: CASE EVENT DATE: 20250101
